FAERS Safety Report 10871363 (Version 5)
Quarter: 2015Q4

REPORT INFORMATION
  Report Type: Spontaneous
  Country: US (occurrence: US)
  Receive Date: 20150226
  Receipt Date: 20151019
  Transmission Date: 20160304
  Serious: Yes (Hospitalization, Other)
  Sender: FDA-Public Use
  Company Number: US-UCBSA-2015005161

PATIENT
  Age: 29 Year
  Sex: Female
  Weight: 108 kg

DRUGS (18)
  1. VIMPAT [Suspect]
     Active Substance: LACOSAMIDE
     Dosage: 2 TABLETS-200 MG AM AND 3 TABLETS-300 MG PM,
     Route: 048
     Dates: start: 20150217
  2. KEPPRA [Suspect]
     Active Substance: LEVETIRACETAM
     Indication: SEIZURE
     Dosage: 1750 MG, 2X/DAY (BID)
     Route: 048
     Dates: start: 201310, end: 201411
  3. LEXAPRO [Concomitant]
     Active Substance: ESCITALOPRAM OXALATE
     Indication: DEPRESSION
     Dosage: 10 MG, ONCE DAILY (QD)
     Route: 048
     Dates: start: 20131127
  4. DILANTIN [Concomitant]
     Active Substance: PHENYTOIN
     Indication: SEIZURE
     Dosage: 200 MG, 2X/DAY (BID)
     Route: 048
     Dates: start: 20131127
  5. VITAMIN D [Concomitant]
     Active Substance: CHOLECALCIFEROL
     Indication: PRODUCT USED FOR UNKNOWN INDICATION
     Dosage: UNK, 50,000 UNIT
  6. VIMPAT [Suspect]
     Active Substance: LACOSAMIDE
     Indication: SEIZURE
     Dosage: 50 MG, 2X/DAY (BID)
     Route: 048
     Dates: start: 201312, end: 201411
  7. ZOFRAN [Concomitant]
     Active Substance: ONDANSETRON HYDROCHLORIDE
     Indication: PRODUCT USED FOR UNKNOWN INDICATION
     Dosage: UNK, ORALLY DISINTEGRATING TABLET, 4 MG EVERY 8 HOURS, AS NEEDED
     Route: 048
  8. TYLENOL WITH CODEINE [Concomitant]
     Active Substance: ACETAMINOPHEN\CODEINE PHOSPHATE
     Indication: PRODUCT USED FOR UNKNOWN INDICATION
     Dosage: UNK, 300-30 MG PER TABLET, AS NEEDED
     Route: 048
  9. VITAMIN B12 [Concomitant]
     Active Substance: CYANOCOBALAMIN
     Indication: PRODUCT USED FOR UNKNOWN INDICATION
     Dosage: 1000 MCG
  10. TEMODAR [Suspect]
     Active Substance: TEMOZOLOMIDE
     Indication: NEUTROPENIA
     Dosage: UNK, MONTHLY (QM) 4/12 CYCLE
     Dates: start: 20140203, end: 20140626
  11. AMBIEN [Concomitant]
     Active Substance: ZOLPIDEM TARTRATE
     Indication: PRODUCT USED FOR UNKNOWN INDICATION
     Dosage: UNK
     Route: 048
  12. TEMODAR [Suspect]
     Active Substance: TEMOZOLOMIDE
     Dosage: 75 MG/M2
     Dates: start: 20150116, end: 2015
  13. KEPPRA [Suspect]
     Active Substance: LEVETIRACETAM
     Dosage: 2000 MG, 2X/DAY (BID)
     Route: 048
     Dates: start: 20150126
  14. ATIVAN [Concomitant]
     Active Substance: LORAZEPAM
     Indication: SEIZURE
     Dosage: 0.5 MG, 3X/DAY (TID) AS NEEDED
     Route: 048
  15. TEMODAR [Suspect]
     Active Substance: TEMOZOLOMIDE
     Indication: CHEMOTHERAPY
     Dosage: , 100-200 MG CAPSULE DAILY
     Dates: start: 20131128, end: 20140106
  16. TEMODAR [Suspect]
     Active Substance: TEMOZOLOMIDE
     Dosage: 21/7
     Dates: start: 20140801, end: 20140927
  17. ZANTAC [Concomitant]
     Active Substance: RANITIDINE HYDROCHLORIDE
     Indication: PRODUCT USED FOR UNKNOWN INDICATION
     Dosage: 150 MG TABLET
  18. BACTRIM DS [Concomitant]
     Active Substance: SULFAMETHOXAZOLE\TRIMETHOPRIM
     Indication: PRODUCT USED FOR UNKNOWN INDICATION
     Dosage: 800-160 MG PER TABLET, 3X/WEEK, ONCE EVERY MONDAY, WED AND FRI WHEN TEMODAR STARTS

REACTIONS (10)
  - Complex partial seizures [Unknown]
  - Photophobia [Unknown]
  - Neutropenia [Not Recovered/Not Resolved]
  - Insomnia [Unknown]
  - Headache [Recovered/Resolved]
  - Off label use [Unknown]
  - Generalised tonic-clonic seizure [Unknown]
  - Stress [Unknown]
  - Overdose [Unknown]
  - Seizure [Recovering/Resolving]

NARRATIVE: CASE EVENT DATE: 201310
